FAERS Safety Report 20496891 (Version 4)
Quarter: 2022Q1

REPORT INFORMATION
  Report Type: Spontaneous
  Country: US (occurrence: US)
  Receive Date: 20220221
  Receipt Date: 20220318
  Transmission Date: 20220423
  Serious: Yes (Hospitalization)
  Sender: FDA-Public Use
  Company Number: US-ELI_LILLY_AND_COMPANY-US202202006644

PATIENT
  Sex: Female
  Weight: 97.06 kg

DRUGS (5)
  1. TADALAFIL [Suspect]
     Active Substance: TADALAFIL
     Indication: Pulmonary arterial hypertension
     Dosage: UNK UNK, UNKNOWN
     Route: 065
  2. REMODULIN [Suspect]
     Active Substance: TREPROSTINIL
     Indication: Pulmonary arterial hypertension
     Dosage: 20 NG/KG/MIN, DAILY
     Route: 042
     Dates: start: 20211123
  3. REMODULIN [Suspect]
     Active Substance: TREPROSTINIL
     Dosage: 28 NG/KG/MIN, DAILY
     Route: 042
     Dates: start: 20211123
  4. OPSUMIT [Concomitant]
     Active Substance: MACITENTAN
     Indication: Product used for unknown indication
  5. ELIQUIS [Concomitant]
     Active Substance: APIXABAN
     Indication: Product used for unknown indication

REACTIONS (8)
  - Fluid retention [Unknown]
  - Dyspnoea [Unknown]
  - Anaemia [Unknown]
  - Infection [Unknown]
  - Gait disturbance [Unknown]
  - Abdominal distension [Not Recovered/Not Resolved]
  - Asthenia [Unknown]
  - Drug ineffective [Unknown]
